FAERS Safety Report 18941492 (Version 4)
Quarter: 2021Q2

REPORT INFORMATION
  Report Type: Spontaneous
  Country: JP (occurrence: JP)
  Receive Date: 20210225
  Receipt Date: 20210521
  Transmission Date: 20210717
  Serious: Yes (Hospitalization, Other)
  Sender: FDA-Public Use
  Company Number: JP-ASTRAZENECA-2021A067721

PATIENT
  Age: 63 Year
  Sex: Female
  Weight: 39 kg

DRUGS (2)
  1. LYNPARZA [Suspect]
     Active Substance: OLAPARIB
     Indication: OVARIAN CANCER RECURRENT
     Route: 048
     Dates: start: 20201211, end: 20210121
  2. NOVAMIN [Concomitant]
     Route: 048
     Dates: start: 20201211, end: 20210121

REACTIONS (3)
  - Anaemia [Recovered/Resolved]
  - SARS-CoV-2 test negative [Unknown]
  - Interstitial lung disease [Recovered/Resolved]

NARRATIVE: CASE EVENT DATE: 20210122
